FAERS Safety Report 8287577-3 (Version None)
Quarter: 2012Q2

REPORT INFORMATION
  Report Type: 
  Country: None (occurrence: None)
  Receive Date: 20120416
  Receipt Date: 20120408
  Transmission Date: 20120825
  Serious: Yes (Other)
  Sender: FDA-Public Use
  Company Number: PHEH2012US007767

PATIENT
  Sex: Female

DRUGS (1)
  1. RECLAST [Suspect]
     Dosage: UNK
     Route: 042
     Dates: start: 20120404

REACTIONS (13)
  - ARTHRALGIA [None]
  - FACE INJURY [None]
  - DIZZINESS [None]
  - MYALGIA [None]
  - FATIGUE [None]
  - CONTUSION [None]
  - ABASIA [None]
  - BONE PAIN [None]
  - SWELLING FACE [None]
  - PAIN [None]
  - PYREXIA [None]
  - LOSS OF CONSCIOUSNESS [None]
  - MUSCLE SPASMS [None]
